FAERS Safety Report 8338509-0 (Version None)
Quarter: 2012Q2

REPORT INFORMATION
  Report Type: 
  Country: None (occurrence: None)
  Receive Date: 20120504
  Receipt Date: 20120427
  Transmission Date: 20120825
  Serious: Yes (Other)
  Sender: FDA-Public Use
  Company Number: US-ABBOTT-12P-163-0916397-00

PATIENT
  Age: 76 Year
  Sex: Female

DRUGS (8)
  1. HUMIRA [Suspect]
     Indication: COLITIS ULCERATIVE
     Dates: start: 20120216, end: 20120320
  2. TRAZODONE HCL [Concomitant]
     Indication: PRODUCT USED FOR UNKNOWN INDICATION
  3. PREDNISONE TAB [Concomitant]
     Dates: start: 20080101
  4. LORAZEPAM [Concomitant]
     Indication: SLEEP DISORDER
  5. SYNTHROID [Concomitant]
     Indication: PRODUCT USED FOR UNKNOWN INDICATION
  6. PREDNISONE TAB [Concomitant]
     Indication: COLITIS ULCERATIVE
     Dosage: WEANING OFF
  7. PROZAC [Concomitant]
     Dosage: WEANING OFF
  8. PROZAC [Concomitant]
     Indication: PRODUCT USED FOR UNKNOWN INDICATION

REACTIONS (5)
  - RESPIRATORY TRACT INFLAMMATION [None]
  - LUNG NEOPLASM MALIGNANT [None]
  - INJECTION SITE PAIN [None]
  - LUNG NEOPLASM [None]
  - OFF LABEL USE [None]
